FAERS Safety Report 8200589-0 (Version None)
Quarter: 2012Q1

REPORT INFORMATION
  Report Type: 
  Country: None (occurrence: None)
  Receive Date: 20120312
  Receipt Date: 20120228
  Transmission Date: 20120608
  Serious: Yes (Death, Other)
  Sender: FDA-Public Use
  Company Number: DE-RANBAXY-2012US-52684

PATIENT

DRUGS (12)
  1. ACTONEL [Suspect]
     Route: 065
  2. CALCIPARINE [Concomitant]
     Indication: PRODUCT USED FOR UNKNOWN INDICATION
     Route: 065
  3. HYDROCORTISONE [Suspect]
     Indication: RHEUMATOID ARTHRITIS
     Dosage: 20 MG DAILY
     Route: 048
     Dates: end: 20120103
  4. CACIT VITAMIN D3 [Suspect]
     Indication: PRODUCT USED FOR UNKNOWN INDICATION
     Dosage: 1 DOSAGE FORM
     Route: 048
     Dates: end: 20111115
  5. IRBESARTAN [Suspect]
     Dosage: UNK
     Route: 065
  6. METFORMIN HCL [Suspect]
     Indication: DIABETES MELLITUS
     Dosage: 2 DOSAGE FORM
     Route: 048
     Dates: end: 20110909
  7. ORENCIA [Suspect]
     Indication: RHEUMATOID ARTHRITIS
     Dosage: UNK
     Route: 042
     Dates: start: 20100112, end: 20111001
  8. IRBESARTAN [Suspect]
     Indication: HYPERTENSION
     Dosage: 150 MG
     Route: 048
     Dates: end: 20111115
  9. METFORMIN HCL [Suspect]
     Dosage: UNK
     Route: 065
  10. PANTOPRAZOLE SODIUM [Suspect]
     Indication: HIATUS HERNIA
     Dosage: 20 MG DAILY
     Route: 048
  11. CACIT VITAMIN D3 [Suspect]
     Route: 065
  12. ACTONEL [Suspect]
     Indication: OSTEOPOROSIS
     Dosage: 1 DF, 1/WEEK
     Route: 048
     Dates: end: 20111115

REACTIONS (7)
  - SHOCK [None]
  - JAUNDICE [None]
  - RENAL IMPAIRMENT [None]
  - PULMONARY EMBOLISM [None]
  - CARDIAC ARREST [None]
  - CHOLESTASIS [None]
  - CYTOLYTIC HEPATITIS [None]
